FAERS Safety Report 6661348-3 (Version None)
Quarter: 2010Q1

REPORT INFORMATION
  Report Type: 
  Country: None (occurrence: None)
  Receive Date: 20100331
  Receipt Date: 20100322
  Transmission Date: 20100710
  Serious: Yes (Other)
  Sender: FDA-Public Use
  Company Number: CHPA2010US05487

PATIENT
  Sex: Female

DRUGS (1)
  1. TRIAMINIC COLD AND ALLERGY (NCH) [Suspect]
     Dosage: UNK,UNK
     Route: 048

REACTIONS (1)
  - HYPOTHYROIDISM [None]
